FAERS Safety Report 23572836 (Version 2)
Quarter: 2024Q1

REPORT INFORMATION
  Report Type: Spontaneous
  Country: FR (occurrence: FR)
  Receive Date: 20240227
  Receipt Date: 20240323
  Transmission Date: 20240410
  Serious: Yes (Hospitalization)
  Sender: FDA-Public Use
  Company Number: FR-PFIZER INC-PV202400022391

PATIENT
  Age: 73 Year
  Sex: Male
  Weight: 76.9 kg

DRUGS (18)
  1. DEXAMETHASONE [Suspect]
     Active Substance: DEXAMETHASONE
     Indication: Product used for unknown indication
     Route: 065
     Dates: start: 20231107
  2. POTASSIUM CHLORIDE [Concomitant]
     Active Substance: POTASSIUM CHLORIDE
     Indication: Product used for unknown indication
     Route: 065
     Dates: start: 20231010
  3. ROXITHROMYCIN [Concomitant]
     Active Substance: ROXITHROMYCIN
     Indication: Product used for unknown indication
     Route: 065
     Dates: start: 20240118
  4. PANTOPRAZOLE [Concomitant]
     Active Substance: PANTOPRAZOLE
     Indication: Product used for unknown indication
     Route: 065
     Dates: start: 20231117, end: 20240111
  5. AMOXICILLIN [Concomitant]
     Active Substance: AMOXICILLIN
     Indication: Product used for unknown indication
     Route: 065
     Dates: start: 20231221, end: 20240111
  6. FUNGIZONE [Concomitant]
     Active Substance: AMPHOTERICIN B
     Indication: Product used for unknown indication
     Route: 065
     Dates: start: 20240111
  7. AMILORIDE HYDROCHLORIDE [Concomitant]
     Active Substance: AMILORIDE HYDROCHLORIDE
     Indication: Product used for unknown indication
     Route: 065
     Dates: start: 20231228, end: 20240111
  8. SODIUM BICARBONATE [Concomitant]
     Active Substance: SODIUM BICARBONATE
     Indication: Product used for unknown indication
     Route: 065
     Dates: start: 20231228
  9. ELIQUIS [Concomitant]
     Active Substance: APIXABAN
     Indication: Product used for unknown indication
     Route: 065
     Dates: start: 20231221
  10. BACTRIM [Concomitant]
     Active Substance: SULFAMETHOXAZOLE\TRIMETHOPRIM
     Indication: Product used for unknown indication
     Route: 065
     Dates: start: 20231108, end: 20240111
  11. AMIODARONE [Concomitant]
     Active Substance: AMIODARONE
     Indication: Product used for unknown indication
     Route: 065
     Dates: start: 20231010
  12. CRESTOR [Concomitant]
     Active Substance: ROSUVASTATIN CALCIUM
     Indication: Product used for unknown indication
     Route: 065
     Dates: start: 20231010
  13. CYCLOPHOSPHAMIDE [Suspect]
     Active Substance: CYCLOPHOSPHAMIDE
     Indication: Product used for unknown indication
     Route: 065
     Dates: start: 20231107
  14. DARATUMUMAB [Concomitant]
     Active Substance: DARATUMUMAB
     Indication: Product used for unknown indication
     Route: 065
     Dates: start: 20231107
  15. VALACYCLOVIR HYDROCHLORIDE [Concomitant]
     Active Substance: VALACYCLOVIR HYDROCHLORIDE
     Indication: Product used for unknown indication
     Route: 065
     Dates: start: 20231221, end: 20240111
  16. ATOVAQUONE [Concomitant]
     Active Substance: ATOVAQUONE
     Indication: Product used for unknown indication
     Route: 065
     Dates: start: 20240118
  17. BORTEZOMIB [Suspect]
     Active Substance: BORTEZOMIB
     Indication: Amyloidosis
     Dosage: DOSE: 1.3 MG/M2, WEEKLY
     Route: 058
     Dates: start: 20231107
  18. FUROSEMIDE [Concomitant]
     Active Substance: FUROSEMIDE
     Indication: Product used for unknown indication
     Route: 065
     Dates: start: 20240102

REACTIONS (1)
  - Varicella [Recovered/Resolved]

NARRATIVE: CASE EVENT DATE: 20240208
